FAERS Safety Report 5975098-X (Version None)
Quarter: 2008Q4

REPORT INFORMATION
  Report Type: 
  Country: None (occurrence: None)
  Receive Date: 20081128
  Receipt Date: 20081120
  Transmission Date: 20090506
  Serious: Yes (Hospitalization)
  Sender: FDA-Public Use
  Company Number: GXKR2008US11097

PATIENT
  Age: 48 Year
  Sex: Male

DRUGS (3)
  1. MYCOPHENOLATE MOFETIL [Suspect]
     Indication: IMMUNOSUPPRESSION
  2. PREDNISONE [Suspect]
     Indication: IMMUNOSUPPRESSION
  3. TACROLIMUS [Suspect]
     Indication: IMMUNOSUPPRESSION

REACTIONS (11)
  - ARTHRALGIA [None]
  - ASTHENIA [None]
  - BLOOD CALCIUM INCREASED [None]
  - DERMATITIS [None]
  - HYPERCALCAEMIA [None]
  - IMMUNE RECONSTITUTION SYNDROME [None]
  - MYCOBACTERIAL INFECTION [None]
  - RASH [None]
  - RASH ERYTHEMATOUS [None]
  - RASH MACULAR [None]
  - SYNOVITIS [None]
